FAERS Safety Report 5404776-6 (Version None)
Quarter: 2007Q3

REPORT INFORMATION
  Report Type: 
  Country: None (occurrence: None)
  Receive Date: 20070803
  Receipt Date: 20070725
  Transmission Date: 20080115
  Serious: Yes (Death, Hospitalization)
  Sender: FDA-Public Use
  Company Number: JP-ABBOTT-06P-087-0345288-00

PATIENT
  Sex: Male

DRUGS (16)
  1. NORVIR [Suspect]
     Indication: HIV INFECTION
     Route: 048
     Dates: start: 20050811, end: 20060509
  2. LAMIVUDINE [Concomitant]
     Indication: HIV INFECTION
     Route: 048
     Dates: start: 20050401, end: 20050810
  3. STAVUDINE [Concomitant]
     Indication: HIV INFECTION
     Route: 048
     Dates: start: 20050401, end: 20050810
  4. NELFINAVIR [Concomitant]
     Indication: HIV INFECTION
     Route: 048
     Dates: start: 20050401, end: 20050810
  5. SAQUINAVIR [Concomitant]
     Indication: HIV INFECTION
     Route: 048
     Dates: start: 20050401, end: 20050810
  6. ATAZANAVIR SULFATE [Concomitant]
     Indication: HIV INFECTION
     Route: 048
     Dates: start: 20050811, end: 20060509
  7. EMTRICITABINE W/TENOFOVIR [Concomitant]
     Indication: HIV INFECTION
     Route: 048
     Dates: start: 20050811, end: 20060509
  8. LOPERAMIDE HYDROCHLORIDE [Concomitant]
     Indication: DIARRHOEA
     Route: 048
     Dates: start: 20050401, end: 20060405
  9. ALENDRONATE SODIUM [Concomitant]
     Indication: OSTEOPOROSIS
     Route: 048
     Dates: start: 20050401, end: 20060405
  10. OCTOCOG ALFA [Concomitant]
     Indication: FACTOR VIII DEFICIENCY
     Route: 042
     Dates: start: 20051028, end: 20051103
  11. EPTACOG ALFA (ACTIVATED) [Concomitant]
     Indication: FACTOR VIII DEFICIENCY
     Route: 042
     Dates: start: 20050401, end: 20060509
  12. TRANEXAMIC ACID [Concomitant]
     Indication: FACTOR VIII DEFICIENCY
     Route: 048
     Dates: start: 20050401, end: 20060509
  13. HUMAN BLOOD-COAGULATION FACTOR EIGHT INHIBITOR BYPASSING ACTIVITY [Concomitant]
     Indication: FACTOR VIII DEFICIENCY
     Route: 042
     Dates: start: 20051001, end: 20060509
  14. FUROSEMIDE [Concomitant]
     Indication: ASCITES
     Route: 048
     Dates: start: 20060413, end: 20060509
  15. ALBUMIN (HUMAN) [Concomitant]
     Indication: HYPOALBUMINAEMIA
     Route: 042
     Dates: start: 20060411, end: 20060413
  16. ALBUMIN (HUMAN) [Concomitant]
     Route: 042
     Dates: start: 20060426, end: 20060428

REACTIONS (4)
  - ANAEMIA [None]
  - GASTRIC ULCER [None]
  - HEPATIC NEOPLASM MALIGNANT [None]
  - MELAENA [None]
